FAERS Safety Report 8843426 (Version 1)
Quarter: 2012Q4

REPORT INFORMATION
  Report Type: 
  Country: US (occurrence: US)
  Receive Date: 20121016
  Receipt Date: 20121016
  Transmission Date: 20130627
  Serious: Yes (Hospitalization, Other)
  Sender: FDA-Public Use
  Company Number: US-ROCHE-1131823

PATIENT
  Sex: Male

DRUGS (1)
  1. NUTROPIN [Suspect]
     Indication: GROWTH HORMONE DEFICIENCY
     Route: 058

REACTIONS (10)
  - Tremor [Unknown]
  - Hyperhidrosis [Unknown]
  - Somnolence [Unknown]
  - Dysarthria [Unknown]
  - Blood glucose decreased [Unknown]
  - Pyrexia [Unknown]
  - Drug dose omission [Unknown]
  - Weight increased [Unknown]
  - Dizziness [Unknown]
  - Joint swelling [Unknown]
